FAERS Safety Report 17800193 (Version 2)
Quarter: 2020Q2

REPORT INFORMATION
  Report Type: Report from Study
  Country: US (occurrence: US)
  Receive Date: 20200518
  Receipt Date: 20200601
  Transmission Date: 20200714
  Serious: Yes (Hospitalization)
  Sender: FDA-Public Use
  Company Number: US-ACTELION-A-NJ2020-205301

PATIENT
  Age: 76 Year
  Sex: Female
  Weight: 61.22 kg

DRUGS (1)
  1. OPSUMIT [Suspect]
     Active Substance: MACITENTAN
     Indication: PULMONARY ARTERIAL HYPERTENSION
     Dosage: 10 MG, QD
     Route: 048

REACTIONS (5)
  - Pneumonia [Unknown]
  - Dyspnoea [Recovering/Resolving]
  - Respiration abnormal [Unknown]
  - Viral infection [Unknown]
  - Hypotension [Unknown]

NARRATIVE: CASE EVENT DATE: 20200411
